FAERS Safety Report 9783079 (Version 2)
Quarter: 2014Q1

REPORT INFORMATION
  Report Type: Report from Study
  Country: US (occurrence: US)
  Receive Date: 20131226
  Receipt Date: 20140108
  Transmission Date: 20141002
  Serious: Yes (Other)
  Sender: FDA-Public Use
  Company Number: PHHO2013US016534

PATIENT
  Age: 68 Year
  Sex: Male
  Weight: 77.1 kg

DRUGS (1)
  1. AFINITOR [Suspect]
     Indication: GASTROINTESTINAL CANCER METASTATIC
     Dosage: 10 MG, QD
     Route: 048
     Dates: start: 20111003, end: 20130923

REACTIONS (1)
  - Colitis ulcerative [Recovered/Resolved]
